FAERS Safety Report 6455244-4 (Version None)
Quarter: 2009Q4

REPORT INFORMATION
  Report Type: 
  Country: None (occurrence: None)
  Receive Date: 20091119
  Receipt Date: 20091110
  Transmission Date: 20100525
  Serious: Yes (Other)
  Sender: FDA-Public Use
  Company Number: OSCN-PR-0911S-0484

PATIENT
  Age: 53 Year
  Sex: Male

DRUGS (4)
  1. OMNISCAN [Suspect]
     Indication: DRUG USE FOR UNKNOWN INDICATION
     Dosage: SINGLE DOSE
     Dates: start: 20050801, end: 20051101
  2. OMNISCAN [Suspect]
     Indication: DRUG USE FOR UNKNOWN INDICATION
     Dosage: SINGLE DOSE
     Dates: start: 20060301, end: 20060401
  3. GADOLINIUM (UNSPECIFIED) [Suspect]
     Dates: start: 20050801, end: 20051101
  4. GADOLINIUM (UNSPECIFIED) [Suspect]
     Dates: start: 20060301, end: 20060401

REACTIONS (1)
  - NEPHROGENIC SYSTEMIC FIBROSIS [None]
